FAERS Safety Report 9619643 (Version 3)
Quarter: 2013Q4

REPORT INFORMATION
  Report Type: Spontaneous
  Country: JP (occurrence: JP)
  Receive Date: 20131014
  Receipt Date: 20131121
  Transmission Date: 20140711
  Serious: Yes (Hospitalization)
  Sender: FDA-Public Use
  Company Number: PHHY2013JP111242

PATIENT
  Age: 61 Year
  Sex: Female

DRUGS (1)
  1. TEGRETOL [Suspect]
     Indication: TRIGEMINAL NEURALGIA
     Route: 048

REACTIONS (15)
  - Drug eruption [Recovering/Resolving]
  - Rash [Recovering/Resolving]
  - Pruritus [Recovering/Resolving]
  - Skin lesion [Recovering/Resolving]
  - Loss of consciousness [Unknown]
  - Hypocalcaemia [Unknown]
  - Hepatic function abnormal [Unknown]
  - Hypokalaemia [Unknown]
  - Cardiac function test abnormal [Unknown]
  - Psychotic disorder [Unknown]
  - Malaise [Unknown]
  - Hypothyroidism [Unknown]
  - Bradycardia [Unknown]
  - Lymphocyte stimulation test positive [Unknown]
  - Pain [Recovering/Resolving]
